FAERS Safety Report 9533028 (Version 1)
Quarter: 2013Q3

REPORT INFORMATION
  Report Type: Spontaneous
  Country: IT (occurrence: IT)
  Receive Date: 20130918
  Receipt Date: 20130918
  Transmission Date: 20140515
  Serious: Yes (Other)
  Sender: FDA-Public Use
  Company Number: IT-TEVA-431997ISR

PATIENT
  Age: 39 Year
  Sex: Male

DRUGS (2)
  1. OXALIPLATINO [Suspect]
     Indication: PANCREATIC CARCINOMA
     Dosage: 100 MG/MQ CYCLICAL; CONCENTRATE FOR SOLUTION FOR INFUSION
     Route: 042
     Dates: start: 20130424, end: 20130906
  2. GEMCITABINA [Concomitant]
     Indication: PANCREATIC CARCINOMA
     Dates: start: 20130423, end: 20130907

REACTIONS (4)
  - Chest discomfort [Recovered/Resolved]
  - Erythema [Recovered/Resolved]
  - Dyspnoea [Recovered/Resolved]
  - Tremor [Recovered/Resolved]
